FAERS Safety Report 21848526 (Version 2)
Quarter: 2023Q2

REPORT INFORMATION
  Report Type: Spontaneous
  Country: US (occurrence: US)
  Receive Date: 20230111
  Receipt Date: 20230410
  Transmission Date: 20230721
  Serious: Yes (Other)
  Sender: FDA-Public Use
  Company Number: US-CHEMOCENTRYX, INC.-2022USCCXI0567

PATIENT

DRUGS (8)
  1. TAVNEOS [Suspect]
     Active Substance: AVACOPAN
     Indication: Anti-neutrophil cytoplasmic antibody positive vasculitis
     Dosage: 30 MG, 2X/DAY IN THE MORNING AND NIGHT WITH FOOD
     Route: 048
     Dates: start: 202208, end: 20221212
  2. TAVNEOS [Suspect]
     Active Substance: AVACOPAN
     Dosage: 30 MG, 2X/DAY IN THE MORNING AND NIGHT WITH FOOD
     Route: 048
     Dates: start: 20221213
  3. LOSARTAN [Concomitant]
     Active Substance: LOSARTAN
     Indication: Product used for unknown indication
     Dosage: 100 MG, 2X/DAY
     Route: 065
  4. DOXAZOSIN [Concomitant]
     Active Substance: DOXAZOSIN MESYLATE
     Indication: Product used for unknown indication
     Dosage: 8 MG, 1X/DAY
     Route: 065
  5. HYDRALAZINE [Concomitant]
     Active Substance: HYDRALAZINE HYDROCHLORIDE
     Indication: Product used for unknown indication
     Dosage: 100 MG, 3X/DAY
     Route: 065
     Dates: start: 2022
  6. HYDRALAZINE [Concomitant]
     Active Substance: HYDRALAZINE HYDROCHLORIDE
     Dosage: 100 MG, 3X/DAY
     Route: 065
     Dates: start: 2022, end: 2022
  7. CLONIDINE [Concomitant]
     Active Substance: CLONIDINE
     Indication: Product used for unknown indication
     Dosage: 0.1 MG, AS NEEDED UP TO 3 TIMES DAILY
     Route: 065
  8. NIFEDIPINE [Concomitant]
     Active Substance: NIFEDIPINE
     Indication: Product used for unknown indication
     Dosage: UNK
     Dates: start: 2022, end: 202211

REACTIONS (2)
  - Hypertension [Not Recovered/Not Resolved]
  - Intentional dose omission [Recovered/Resolved]

NARRATIVE: CASE EVENT DATE: 20221118
